FAERS Safety Report 7028499-5 (Version None)
Quarter: 2010Q4

REPORT INFORMATION
  Report Type: 
  Country: None (occurrence: None)
  Receive Date: 20101005
  Receipt Date: 20100929
  Transmission Date: 20110411
  Serious: Yes (Hospitalization, Other)
  Sender: FDA-Public Use
  Company Number: US-SANOFI-AVENTIS-2010SA042163

PATIENT
  Age: 80 Year
  Weight: 71.2 kg

DRUGS (16)
  1. MULTAQ [Suspect]
     Indication: ATRIAL FIBRILLATION
     Route: 048
     Dates: start: 20100614, end: 20100620
  2. COUMADIN [Concomitant]
     Indication: ATRIAL FIBRILLATION
     Dosage: 4 TO 6 MG DAILY
     Route: 048
     Dates: start: 20100419
  3. FLEXERIL [Concomitant]
     Dates: start: 20100611
  4. AMLODIPINE BESYLATE AND BENAZEPRIL HCL [Concomitant]
     Dosage: 5/20MG DAILY
     Dates: start: 20100405
  5. VITAMIN D [Concomitant]
     Dosage: DOSE:1000 UNIT(S)
     Dates: start: 20080806
  6. K-DUR [Concomitant]
     Route: 048
     Dates: start: 20080529
  7. SYNTHROID [Concomitant]
     Route: 048
  8. DYAZIDE [Concomitant]
     Dosage: 37.5/25MG
     Route: 048
  9. PRAVACHOL [Concomitant]
     Route: 048
  10. ASPIRIN [Concomitant]
     Route: 048
  11. LOVENOX [Concomitant]
     Route: 051
  12. PROPOXYPHENE HCL AND ACETAMINOPHEN [Concomitant]
     Dosage: 100/500 MG
     Route: 048
  13. AMBIEN [Concomitant]
     Route: 048
  14. COLACE [Concomitant]
     Route: 048
  15. NASONEX [Concomitant]
     Dosage: 50 MCG/ACTUATION
     Route: 045
  16. ALLEGRA [Concomitant]
     Route: 048

REACTIONS (6)
  - ATRIAL FIBRILLATION [None]
  - CARDIAC FAILURE [None]
  - CHEST PAIN [None]
  - DYSPNOEA [None]
  - OEDEMA PERIPHERAL [None]
  - WEIGHT INCREASED [None]
